FAERS Safety Report 8025127-7 (Version None)
Quarter: 2012Q1

REPORT INFORMATION
  Report Type: 
  Country: None (occurrence: None)
  Receive Date: 20120105
  Receipt Date: 20111228
  Transmission Date: 20120608
  Serious: No
  Sender: FDA-Public Use
  Company Number: US-PURDUE-USA-2011-0079625

PATIENT
  Sex: Female
  Weight: 68.934 kg

DRUGS (3)
  1. OXYCONTIN [Suspect]
     Indication: SPINAL FUSION SURGERY
  2. OXYCONTIN [Suspect]
     Indication: RHEUMATOID ARTHRITIS
  3. OXYCONTIN [Suspect]
     Indication: INTERVERTEBRAL DISC DEGENERATION
     Dosage: 40 MG, SEE TEXT

REACTIONS (1)
  - FALL [None]
